FAERS Safety Report 5266607-7 (Version None)
Quarter: 2007Q1

REPORT INFORMATION
  Report Type: 
  Country: None (occurrence: None)
  Receive Date: 20070315
  Receipt Date: 20070220
  Transmission Date: 20070707
  Serious: Yes (Death)
  Sender: FDA-Public Use
  Company Number: US-PFIZER INC-2007017951

PATIENT

DRUGS (1)
  1. SUTENT [Suspect]

REACTIONS (3)
  - CARDIAC DISORDER [None]
  - DEATH [None]
  - DIARRHOEA [None]
